FAERS Safety Report 7458865-5 (Version None)
Quarter: 2011Q2

REPORT INFORMATION
  Report Type: 
  Country: None (occurrence: None)
  Receive Date: 20110504
  Receipt Date: 20110426
  Transmission Date: 20111010
  Serious: Yes (Other)
  Sender: FDA-Public Use
  Company Number: PHHO2011US05570

PATIENT
  Sex: Female
  Weight: 84 kg

DRUGS (11)
  1. IBUPROFEN [Concomitant]
  2. GILENYA [Suspect]
     Dosage: 0.5 MG, QD
     Route: 048
     Dates: start: 20100224, end: 20110131
  3. CELEBREX [Concomitant]
  4. GILENYA [Suspect]
     Indication: MULTIPLE SCLEROSIS
     Dosage: DOSE BLINDED
     Route: 048
  5. PRAVACHOL [Concomitant]
  6. ACETAMINOPHEN [Concomitant]
  7. PROCARDIA [Concomitant]
  8. DDAVP [Concomitant]
  9. TRIAMTERENE AND HYDROCHLOROTHIAZID [Concomitant]
  10. DITROPAN [Concomitant]
  11. FLOMAX [Concomitant]

REACTIONS (1)
  - LIP NEOPLASM MALIGNANT STAGE UNSPECIFIED [None]
